FAERS Safety Report 4697719-4 (Version None)
Quarter: 2005Q2

REPORT INFORMATION
  Report Type: 
  Country: None (occurrence: None)
  Receive Date: 20050621
  Receipt Date: 20050621
  Transmission Date: 20051028
  Serious: Yes (Hospitalization)
  Sender: FDA-Public Use
  Company Number: None

PATIENT
  Age: 36 Year
  Sex: Female
  Weight: 95.5 kg

DRUGS (1)
  1. BUPIVACAINE [Suspect]
     Indication: SPINAL ANAESTHESIA
     Dosage: 10 MG INTRATHECAL INJECTION BETWEEN L3/L4
     Route: 037
     Dates: start: 20050110

REACTIONS (3)
  - BACK PAIN [None]
  - LUMBAR PUNCTURE HEADACHE [None]
  - POST PROCEDURAL COMPLICATION [None]
